FAERS Safety Report 4602278-8 (Version None)
Quarter: 2005Q2

REPORT INFORMATION
  Report Type: 
  Country: None (occurrence: None)
  Receive Date: 20050215
  Receipt Date: 20041208
  Transmission Date: 20051028
  Serious: Yes (Hospitalization)
  Sender: FDA-Public Use
  Company Number: 381555

PATIENT
  Age: 54 Year
  Sex: Female
  Weight: 88.5 kg

DRUGS (3)
  1. PEGASYS [Suspect]
     Indication: HEPATITIS C
     Dosage: 180 MCG 1 PER WEEK SUBCUTANEOUS
     Route: 058
     Dates: start: 20040618
  2. COPEGUS [Suspect]
     Indication: HEPATITIS C
     Dosage: 600 MG DAILY ORAL
     Route: 048
     Dates: start: 20040618
  3. FOSAMAX [Concomitant]

REACTIONS (1)
  - PULMONARY EMBOLISM [None]
